FAERS Safety Report 10436523 (Version 1)
Quarter: 2014Q3

REPORT INFORMATION
  Report Type: Spontaneous
  Country: US (occurrence: US)
  Receive Date: 20140908
  Receipt Date: 20140908
  Transmission Date: 20150326
  Serious: No
  Sender: FDA-Public Use
  Company Number: US-ASTRAZENECA-2014SE65233

PATIENT
  Sex: Male

DRUGS (4)
  1. VENTOLIN [Concomitant]
     Active Substance: ALBUTEROL SULFATE
     Dosage: NR
  2. SYMBICORT [Suspect]
     Active Substance: BUDESONIDE\FORMOTEROL FUMARATE DIHYDRATE
     Dosage: TOOK 2 PUFFS IN THE MORNING
     Route: 055
  3. SYMBICORT [Suspect]
     Active Substance: BUDESONIDE\FORMOTEROL FUMARATE DIHYDRATE
     Dosage: 2 PUFFS BID
     Route: 055
     Dates: start: 201210
  4. SYMBICORT [Suspect]
     Active Substance: BUDESONIDE\FORMOTEROL FUMARATE DIHYDRATE
     Dosage: SOMETIMES TAKES ONE IN THE MORNING, SOMETIMES HE DOESN^T, THERE WOULD BE 2 AT THE END OF THE DAY
     Route: 055

REACTIONS (3)
  - Intentional product misuse [Unknown]
  - Dysphonia [Unknown]
  - Vocal cord disorder [Unknown]
